FAERS Safety Report 9335640 (Version 4)
Quarter: 2013Q3

REPORT INFORMATION
  Report Type: Report from Study
  Country: US (occurrence: US)
  Receive Date: 20130605
  Receipt Date: 20130715
  Transmission Date: 20140515
  Serious: Yes (Hospitalization)
  Sender: FDA-Public Use
  Company Number: US-ACTELION-A-NJ2013-83632

PATIENT
  Age: 72 Year
  Sex: Female

DRUGS (12)
  1. VENTAVIS [Suspect]
     Indication: PULMONARY ARTERIAL HYPERTENSION
     Dosage: 5 MCG, 6 TIMES A DAY
     Route: 055
     Dates: start: 2013
  2. TRACLEER [Suspect]
     Indication: PULMONARY ARTERIAL HYPERTENSION
     Dosage: 62.5 MG, BID
     Route: 048
     Dates: start: 201107, end: 2011
  3. TRACLEER [Suspect]
     Dosage: 125 MG, BID
     Route: 048
     Dates: start: 2011
  4. TYVASO [Concomitant]
  5. COUMADIN [Concomitant]
  6. ALLOPURINOL [Concomitant]
     Dosage: 300 MG, BID
  7. SYNTHROID [Concomitant]
     Dosage: 0.5 MG, BID
  8. FUROSEMIDE [Concomitant]
     Dosage: 80 MG IN AM, 40 MG IN PM
  9. SIMVASTATIN [Concomitant]
     Dosage: 10 MG, QD
  10. HYDROXYUREA [Concomitant]
     Dosage: 500 MG, QD
  11. ATENOLOL [Concomitant]
     Dosage: 25 MG, QD
  12. ASPIRIN [Concomitant]
     Dosage: 325 MG, QD

REACTIONS (13)
  - Fall [Unknown]
  - Ligament sprain [Unknown]
  - Pulmonary arterial hypertension [Not Recovered/Not Resolved]
  - Dyspnoea [Not Recovered/Not Resolved]
  - Loss of consciousness [Not Recovered/Not Resolved]
  - Fatigue [Not Recovered/Not Resolved]
  - Chest pain [Not Recovered/Not Resolved]
  - Condition aggravated [Not Recovered/Not Resolved]
  - Vomiting [Unknown]
  - Headache [Recovered/Resolved]
  - Dizziness [Unknown]
  - Heart rate increased [Unknown]
  - No therapeutic response [Unknown]
